FAERS Safety Report 4308050-0 (Version None)
Quarter: 2004Q1

REPORT INFORMATION
  Report Type: 
  Country: None (occurrence: None)
  Receive Date: 20040301
  Receipt Date: 20030415
  Transmission Date: 20041129
  Serious: No
  Sender: FDA-Public Use
  Company Number: US-BRISTOL-MYERS SQUIBB COMPANY-12240511

PATIENT
  Age: 68 Year
  Sex: Female

DRUGS (3)
  1. GLUCOPHAGE [Suspect]
     Dates: end: 20030225
  2. GLYBURIDE [Suspect]
     Dates: end: 20030225
  3. ACARBOSE [Concomitant]

REACTIONS (2)
  - BLOOD GLUCOSE INCREASED [None]
  - UNEVALUABLE EVENT [None]
